FAERS Safety Report 8386683-2 (Version None)
Quarter: 2012Q2

REPORT INFORMATION
  Report Type: 
  Country: None (occurrence: None)
  Receive Date: 20120525
  Receipt Date: 20120516
  Transmission Date: 20120825
  Serious: Yes (Hospitalization)
  Sender: FDA-Public Use
  Company Number: US-BAYER-2012-049475

PATIENT
  Age: 26 Year
  Sex: Female

DRUGS (9)
  1. AZITHROMYCIN [Concomitant]
     Dosage: 250 MG, UNK
     Route: 048
     Dates: start: 20110108
  2. CIPROFLOXACIN HCL [Concomitant]
     Indication: ACUTE SINUSITIS
     Dosage: 500 MG, UNK
     Route: 048
     Dates: start: 20110111
  3. PANTOPRAZOLE [Concomitant]
     Dosage: 40MG EVERY DAY
     Dates: start: 20101122
  4. CIPROFLOXACIN HCL [Concomitant]
     Indication: OTITIS MEDIA ACUTE
  5. ACETAMINOPHEN [Concomitant]
     Dosage: 500MG
     Route: 048
     Dates: start: 20110108
  6. DROSPIRENONE AND ETHINYL ESTRADIOL [Suspect]
  7. CLARITIN [Concomitant]
     Dosage: 10 MG, DAILY
     Route: 048
     Dates: start: 20110111
  8. NASCOBAL [Concomitant]
     Dosage: 500MCG
     Dates: start: 20110117
  9. ROCEPHIN [Concomitant]
     Dosage: 250 MG, UNK
     Route: 030
     Dates: start: 20110108

REACTIONS (1)
  - MYOCARDIAL INFARCTION [None]
